FAERS Safety Report 9369787 (Version 1)
Quarter: 2013Q2

REPORT INFORMATION
  Report Type: Spontaneous
  Country: US (occurrence: US)
  Receive Date: 20130626
  Receipt Date: 20130626
  Transmission Date: 20140414
  Serious: No
  Sender: FDA-Public Use
  Company Number: US-BAYER-2013-076458

PATIENT
  Age: 29 Year
  Sex: Female
  Weight: 72.11 kg

DRUGS (3)
  1. BETASERON [Suspect]
     Dosage: 0.25 MG, QOD
     Route: 058
  2. GILENYA [Concomitant]
     Dosage: 0.5 MG, UNK
  3. OMEGA 3 [Concomitant]
     Dosage: 1000 MG, UNK

REACTIONS (3)
  - Injection site erythema [Recovered/Resolved]
  - Injection site bruising [Recovered/Resolved]
  - Injection site swelling [Recovered/Resolved]
